FAERS Safety Report 6577990-4 (Version None)
Quarter: 2010Q1

REPORT INFORMATION
  Report Type: 
  Country: None (occurrence: None)
  Receive Date: 20100211
  Receipt Date: 20100208
  Transmission Date: 20100710
  Serious: Yes (Death, Other)
  Sender: FDA-Public Use
  Company Number: US-BRISTOL-MYERS SQUIBB COMPANY-14968374

PATIENT
  Age: 50 Year
  Sex: Female
  Weight: 101 kg

DRUGS (10)
  1. PACLITAXEL [Suspect]
     Indication: BREAST CANCER
     Route: 042
     Dates: start: 20091007
  2. BEVACIZUMAB [Suspect]
     Indication: BREAST CANCER
     Route: 042
     Dates: start: 20091007
  3. BLINDED: EVEROLIMUS [Suspect]
     Indication: BREAST CANCER
     Dates: start: 20091007
  4. BLINDED: PLACEBO [Suspect]
     Indication: BREAST CANCER
     Dates: start: 20091007
  5. ZOMETA [Concomitant]
     Dates: start: 20091214
  6. OXYCODONE HCL [Concomitant]
  7. TRAMADOL [Concomitant]
  8. GLIMEPIRIDE [Concomitant]
  9. EMLA [Concomitant]
  10. PROCHLORPERAZINE MALEATE [Concomitant]

REACTIONS (3)
  - DEHYDRATION [None]
  - DIARRHOEA [None]
  - INFLUENZA LIKE ILLNESS [None]
